FAERS Safety Report 4304863-X (Version None)
Quarter: 2004Q1

REPORT INFORMATION
  Report Type: 
  Country: None (occurrence: None)
  Receive Date: 20040226
  Receipt Date: 20040102
  Transmission Date: 20041129
  Serious: No
  Sender: FDA-Public Use
  Company Number: US-GLAXOSMITHKLINE-A0490955A

PATIENT
  Sex: Female

DRUGS (7)
  1. WELLBUTRIN [Suspect]
     Indication: DEPRESSION
     Dosage: 300MG PER DAY
     Route: 048
     Dates: start: 20031230
  2. RITALIN [Concomitant]
  3. K-DUR 10 [Concomitant]
  4. METADATE [Concomitant]
  5. ALLEGRA-D [Concomitant]
  6. NEXIUM [Concomitant]
  7. RELPAX [Concomitant]

REACTIONS (2)
  - HEADACHE [None]
  - MIGRAINE [None]
